FAERS Safety Report 18390650 (Version 1)
Quarter: 2020Q4

REPORT INFORMATION
  Report Type: Spontaneous
  Country: CA (occurrence: CA)
  Receive Date: 20201016
  Receipt Date: 20201016
  Transmission Date: 20210114
  Serious: Yes (Other)
  Sender: FDA-Public Use
  Company Number: CA-ASTRAZENECA-2020SF30153

PATIENT
  Age: 62 Year
  Sex: Male

DRUGS (3)
  1. BRILINTA [Suspect]
     Active Substance: TICAGRELOR
     Indication: DIABETES MELLITUS
     Route: 048
  2. RAMIPRIL. [Concomitant]
     Active Substance: RAMIPRIL
  3. SPIRONOLACTONE. [Concomitant]
     Active Substance: SPIRONOLACTONE

REACTIONS (6)
  - Mass [Recovering/Resolving]
  - Facial pain [Recovering/Resolving]
  - Pain in jaw [Recovering/Resolving]
  - Contusion [Recovering/Resolving]
  - Swelling face [Recovering/Resolving]
  - Gingival swelling [Unknown]
